FAERS Safety Report 5661281-X (Version None)
Quarter: 2008Q1

REPORT INFORMATION
  Report Type: 
  Country: None (occurrence: None)
  Receive Date: 20080312
  Receipt Date: 20080306
  Transmission Date: 20080703
  Serious: Yes (Congenital Anomaly)
  Sender: FDA-Public Use
  Company Number: D0056443B

PATIENT

DRUGS (1)
  1. AVODART [Suspect]
     Dates: start: 20071201

REACTIONS (3)
  - CONGENITAL ANOMALY [None]
  - DRUG EXPOSURE DURING PREGNANCY [None]
  - FEMINISATION ACQUIRED [None]
